FAERS Safety Report 14293975 (Version 1)
Quarter: 2017Q4

REPORT INFORMATION
  Report Type: Spontaneous
  Country: US (occurrence: US)
  Receive Date: 20171216
  Receipt Date: 20171216
  Transmission Date: 20180321
  Serious: No
  Sender: FDA-Public Use
  Company Number: US-ASTRAZENECA-2017SF27520

PATIENT
  Sex: Female
  Weight: 48.1 kg

DRUGS (1)
  1. SYMBICORT [Suspect]
     Active Substance: BUDESONIDE\FORMOTEROL FUMARATE DIHYDRATE
     Indication: ASTHMA
     Dosage: 160/4.5MCG, TWO TIMES A DAY
     Route: 055

REACTIONS (3)
  - Insomnia [Unknown]
  - Headache [Unknown]
  - Off label use [Unknown]
